FAERS Safety Report 9781450 (Version 3)
Quarter: 2014Q2

REPORT INFORMATION
  Report Type: Spontaneous
  Country: DE (occurrence: DE)
  Receive Date: 20131224
  Receipt Date: 20140502
  Transmission Date: 20141212
  Serious: Yes (Hospitalization)
  Sender: FDA-Public Use
  Company Number: DE-BRISTOL-MYERS SQUIBB COMPANY-19919463

PATIENT
  Age: 58 Year
  Sex: Male

DRUGS (9)
  1. ABATACEPT SUBQ INJECTION 125MG/ML [Suspect]
     Indication: RHEUMATOID ARTHRITIS
     Route: 058
     Dates: start: 20131004
  2. ETANERCEPT [Suspect]
     Indication: RHEUMATOID ARTHRITIS
     Dosage: ON 18SEP2013 LAST DOSE OF 50 MG
     Route: 058
     Dates: start: 20131025
  3. GENTAMICIN [Concomitant]
     Dosage: 1 DF : 1 UNIT
     Route: 047
     Dates: start: 201309, end: 201310
  4. RAMIPRIL [Concomitant]
     Indication: HYPERTENSION
     Route: 048
     Dates: start: 201205, end: 201212
  5. METHOTREXATE [Concomitant]
     Route: 058
  6. PREDNISOLONE [Concomitant]
     Indication: RHEUMATOID ARTHRITIS
     Route: 048
  7. FOLIC ACID [Concomitant]
     Route: 048
  8. IBUPROFEN [Concomitant]
     Indication: RHEUMATOID ARTHRITIS
     Route: 048
  9. CIMZIA [Concomitant]
     Dosage: RESTARTED ON:30JAN14:200MG 1 IN 2 WEEK
     Route: 058
     Dates: start: 20131219, end: 20140116

REACTIONS (1)
  - Asthma [Recovered/Resolved]
